FAERS Safety Report 6397785-4 (Version None)
Quarter: 2009Q4

REPORT INFORMATION
  Report Type: 
  Country: None (occurrence: None)
  Receive Date: 20091007
  Receipt Date: 20030121
  Transmission Date: 20100525
  Serious: Yes (Death)
  Sender: FDA-Public Use
  Company Number: 2009008898

PATIENT
  Sex: Male

DRUGS (2)
  1. ACTIQ [Suspect]
     Dosage: (400 MCG),BU; (800 MCG),BU
     Route: 002
  2. DILAUDID [Concomitant]

REACTIONS (1)
  - DEATH [None]
